FAERS Safety Report 17099009 (Version 5)
Quarter: 2020Q1

REPORT INFORMATION
  Report Type: Report from Study
  Country: FR (occurrence: FR)
  Receive Date: 20191202
  Receipt Date: 20200117
  Transmission Date: 20200409
  Serious: Yes (Hospitalization)
  Sender: FDA-Public Use
  Company Number: FR-PFIZER INC-2019458326

PATIENT
  Age: 68 Year
  Sex: Male
  Weight: 74.6 kg

DRUGS (24)
  1. AXITINIB [Suspect]
     Active Substance: AXITINIB
     Dosage: 6 MG, DAILY (TOTAL DAILY DOSE: 6 MILIGRAM)
     Route: 048
     Dates: start: 20191113, end: 20191119
  2. PEMBROLIZUMAB. [Suspect]
     Active Substance: PEMBROLIZUMAB
     Dosage: 200 MG, EVERY 3 WEEKS
     Route: 042
     Dates: start: 20190709, end: 20191022
  3. GAVISCON [ALGINIC ACID;ALUMINIUM HYDROXIDE;SODIUM BICARBONATE] [Concomitant]
     Dosage: 1 DF, UNK
     Route: 048
     Dates: start: 20180626
  4. KARDEGIC [Concomitant]
     Active Substance: ASPIRIN DL-LYSINE
     Dosage: 160 MG, UNK
     Route: 048
     Dates: start: 201711
  5. SPASFON [PHLOROGLUCINOL;TRIMETHYLPHLOROGLUCINOL] [Concomitant]
     Active Substance: PHLOROGLUCINOL\1,3,5-TRIMETHOXYBENZENE
     Dosage: 2 DF, UNK
     Dates: start: 20180626
  6. PEMBROLIZUMAB. [Suspect]
     Active Substance: PEMBROLIZUMAB
     Indication: RENAL CELL CARCINOMA
     Dosage: 200 MG, EVERY 3 WEEKS,(200 MG (VOLUME OF INFUSION 115 ML))
     Route: 042
     Dates: start: 20171219, end: 20190528
  7. DOLIPRANE [Concomitant]
     Active Substance: ACETAMINOPHEN
     Dosage: 1 G, UNK
     Dates: start: 201711
  8. DEXERYL [GLYCEROL;PARAFFIN, LIQUID;WHITE SOFT PARAFFIN] [Concomitant]
     Active Substance: GLYCERIN\MINERAL OIL\PETROLATUM
     Dosage: 2 DF, UNK
     Dates: start: 20180626
  9. PEMBROLIZUMAB. [Suspect]
     Active Substance: PEMBROLIZUMAB
     Dosage: 200 MG, EVERY 3 WEEKS (CYCLE 34)
     Route: 042
     Dates: start: 20191112, end: 20191112
  10. BISOPROLOL [Concomitant]
     Active Substance: BISOPROLOL
     Dosage: 2.5 MG, UNK
     Dates: start: 201711
  11. CANDESARTAN. [Concomitant]
     Active Substance: CANDESARTAN
     Dosage: 4 MG, UNK
     Dates: start: 201711
  12. LAMALINE (ACETAMINOPHEN\CAFFEINE\OPIUM) [Concomitant]
     Active Substance: ACETAMINOPHEN\CAFFEINE\OPIUM
     Dosage: 300 MG, UNK
     Dates: start: 20171226
  13. AXITINIB [Suspect]
     Active Substance: AXITINIB
     Dosage: 6 MG, DAILY (TOTAL DAILY DOSE: 6 MG)
     Route: 048
     Dates: start: 20190618, end: 20190708
  14. AXITINIB [Suspect]
     Active Substance: AXITINIB
     Dosage: 3 MG, DAILY (TOTAL DAILY DOSE: 3 MG)
     Route: 048
     Dates: start: 20191120, end: 20191120
  15. PEMBROLIZUMAB. [Suspect]
     Active Substance: PEMBROLIZUMAB
     Dosage: 200 MG, EVERY 3 WEEKS (200 MILLIGRAM, Q3W)
     Route: 042
     Dates: start: 20191203
  16. LEVOTHYROX [Concomitant]
     Active Substance: LEVOTHYROXINE
     Indication: HYPOTHYROIDISM
     Dosage: 150 UG, UNK
     Dates: start: 20180918, end: 20200102
  17. PEMBROLIZUMAB. [Suspect]
     Active Substance: PEMBROLIZUMAB
     Dosage: 200 MG, EVERY 3 WEEKS,(200 MG (VOLUME OF INFUSION 115 ML))
     Route: 042
     Dates: start: 20190618, end: 20190618
  18. INEGY [Concomitant]
     Active Substance: EZETIMIBE\SIMVASTATIN
     Dosage: 1 DF, UNK
     Dates: start: 201711
  19. INEXIUM [ESOMEPRAZOLE MAGNESIUM] [Concomitant]
     Active Substance: ESOMEPRAZOLE MAGNESIUM
     Dosage: 20 MG, UNK
     Dates: start: 201711
  20. LOPERAMIDE [Concomitant]
     Active Substance: LOPERAMIDE
     Dosage: 1 DF, UNK
     Dates: start: 20180717
  21. DIPROSONE [Concomitant]
     Active Substance: BETAMETHASONE DIPROPIONATE
     Dosage: 1 DF, UNK
     Dates: start: 20190416
  22. AXITINIB [Suspect]
     Active Substance: AXITINIB
     Indication: RENAL CELL CARCINOMA
     Dosage: FLUCTUATED DOSE (STARTING DOSE 5 MG, BID)
     Route: 048
     Dates: start: 20171219, end: 20190617
  23. AXITINIB [Suspect]
     Active Substance: AXITINIB
     Dosage: 6 MG, DAILY (FLUCTUATED DOSE (STARTING DOSE: 6 MG DAILY)
     Route: 048
     Dates: start: 20190709, end: 20191112
  24. SMECTA [Concomitant]
     Active Substance: MONTMORILLONITE
     Dosage: 1 DF, UNK
     Route: 048
     Dates: start: 20180626

REACTIONS (2)
  - Arthralgia [Not Recovered/Not Resolved]
  - Device related infection [Not Recovered/Not Resolved]

NARRATIVE: CASE EVENT DATE: 20190618
